FAERS Safety Report 11486245 (Version 2)
Quarter: 2015Q4

REPORT INFORMATION
  Report Type: Spontaneous
  Country: DE (occurrence: DE)
  Receive Date: 20150909
  Receipt Date: 20151113
  Transmission Date: 20160304
  Serious: Yes (Death)
  Sender: FDA-Public Use
  Company Number: DE-ROCHE-1632094

PATIENT
  Age: 68 Year
  Sex: Female

DRUGS (7)
  1. HERCEPTIN [Suspect]
     Active Substance: TRASTUZUMAB
     Indication: BREAST CANCER
     Route: 042
     Dates: start: 20150827, end: 20150827
  2. DEXAMETHASON [Concomitant]
     Active Substance: DEXAMETHASONE
     Indication: ALLERGY PROPHYLAXIS
     Route: 042
     Dates: start: 20150827, end: 20150827
  3. PERJETA [Suspect]
     Active Substance: PERTUZUMAB
     Indication: BREAST CANCER
     Route: 042
     Dates: start: 20150827, end: 20150827
  4. TAVEGIL [Concomitant]
     Active Substance: CLEMASTINE FUMARATE
     Indication: ALLERGY PROPHYLAXIS
     Route: 042
     Dates: start: 20150827, end: 20150827
  5. KEVATRIL [Concomitant]
     Active Substance: GRANISETRON HYDROCHLORIDE
     Indication: PROPHYLAXIS OF NAUSEA AND VOMITING
     Route: 042
     Dates: start: 20150827, end: 20150827
  6. DOCETAXEL. [Suspect]
     Active Substance: DOCETAXEL
     Indication: BREAST CANCER
     Route: 042
     Dates: start: 20150827, end: 20150827
  7. RANITIDIN [Concomitant]
     Active Substance: RANITIDINE HYDROCHLORIDE
     Indication: ALLERGY PROPHYLAXIS
     Route: 042
     Dates: start: 20150827, end: 20150827

REACTIONS (2)
  - Sepsis [Fatal]
  - Aplasia [Fatal]

NARRATIVE: CASE EVENT DATE: 20150831
